FAERS Safety Report 5236441-2 (Version None)
Quarter: 2007Q1

REPORT INFORMATION
  Report Type: 
  Country: None (occurrence: None)
  Receive Date: 20070208
  Receipt Date: 20070130
  Transmission Date: 20070707
  Serious: Yes (Other)
  Sender: FDA-Public Use
  Company Number: GXKR2007GB01283

PATIENT
  Age: 64 Year
  Sex: Male
  Weight: 93 kg

DRUGS (1)
  1. MIRTAZAPINE [Suspect]
     Dosage: 45 MG, ORAL
     Route: 048
     Dates: start: 20060503, end: 20061130

REACTIONS (1)
  - BLOOD GLUCOSE ABNORMAL [None]
